FAERS Safety Report 9745336 (Version 1)
Quarter: 2013Q4

REPORT INFORMATION
  Report Type: Report from Study
  Country: US (occurrence: US)
  Receive Date: 20131211
  Receipt Date: 20131211
  Transmission Date: 20140711
  Serious: Yes (Death, Other)
  Sender: FDA-Public Use
  Company Number: US-ROCHE-1315470

PATIENT
  Age: 69 Year
  Sex: Male

DRUGS (1)
  1. ACTEMRA [Suspect]
     Indication: RHEUMATOID ARTHRITIS
     Dosage: LAST INFUSION 16-APR-2013 8OO MGS
     Route: 042
     Dates: start: 20110428

REACTIONS (3)
  - Lung disorder [Fatal]
  - Rib fracture [Unknown]
  - Cough [Unknown]
